FAERS Safety Report 14752219 (Version 3)
Quarter: 2018Q2

REPORT INFORMATION
  Report Type: Report from Study
  Country: US (occurrence: US)
  Receive Date: 20180412
  Receipt Date: 20180516
  Transmission Date: 20180711
  Serious: No
  Sender: FDA-Public Use
  Company Number: PHEH2018US014113

PATIENT
  Sex: Male

DRUGS (1)
  1. ILARIS [Suspect]
     Active Substance: CANAKINUMAB
     Indication: MUCKLE-WELLS SYNDROME
     Dosage: 150 MG, EVERY 8 WEEKS
     Route: 058

REACTIONS (9)
  - Decreased activity [Unknown]
  - Weight increased [Unknown]
  - Pain [Unknown]
  - Condition aggravated [Unknown]
  - Arthritis [Unknown]
  - Stenosis [Unknown]
  - Back disorder [Unknown]
  - Muckle-Wells syndrome [Unknown]
  - Mood altered [Unknown]
